FAERS Safety Report 7747481-3 (Version None)
Quarter: 2011Q3

REPORT INFORMATION
  Report Type: 
  Country: None (occurrence: None)
  Receive Date: 20110913
  Receipt Date: 20110906
  Transmission Date: 20111222
  Serious: Yes (Other)
  Sender: FDA-Public Use
  Company Number: CA-PFIZER INC-2011139931

PATIENT
  Age: 85 Year
  Sex: Female
  Weight: 53.968 kg

DRUGS (5)
  1. HYZAAR [Concomitant]
     Indication: HYPERTENSION
     Dosage: 1.25 MG, 1X/DAY
     Dates: start: 20010101
  2. SYNTHROID [Concomitant]
     Indication: THYROID THERAPY
     Dosage: 0.125 MG, 1X/DAY
     Dates: start: 20010101
  3. COSOPT [Concomitant]
     Indication: GLAUCOMA
     Dosage: UNK
     Dates: start: 20010101
  4. XALATAN [Suspect]
     Indication: GLAUCOMA
     Dosage: 1 GTT IN BOTH EYES, 2X/DAY, MORNING ANG EVENING
     Route: 047
  5. ALPHAGAN [Concomitant]
     Indication: GLAUCOMA
     Dosage: UNK
     Dates: start: 20010101

REACTIONS (1)
  - VISUAL FIELD TESTS ABNORMAL [None]
